FAERS Safety Report 7940203-2 (Version None)
Quarter: 2011Q4

REPORT INFORMATION
  Report Type: 
  Country: None (occurrence: None)
  Receive Date: 20111126
  Receipt Date: 20110914
  Transmission Date: 20120403
  Serious: No
  Sender: FDA-Public Use
  Company Number: US-BAYER-2011-091026

PATIENT
  Sex: Female

DRUGS (2)
  1. IBUPROFEN (ADVIL) [Concomitant]
  2. ALEVE (CAPLET) [Suspect]
     Indication: BACK PAIN

REACTIONS (1)
  - BACK PAIN [None]
